FAERS Safety Report 7174825-6 (Version None)
Quarter: 2010Q4

REPORT INFORMATION
  Report Type: 
  Country: None (occurrence: None)
  Receive Date: 20101219
  Receipt Date: 20100423
  Transmission Date: 20110411
  Serious: No
  Sender: FDA-Public Use
  Company Number: US-AMGEN-KDL403962

PATIENT

DRUGS (14)
  1. ENBREL [Suspect]
     Indication: PSORIATIC ARTHROPATHY
     Dosage: 50 MG, QWK
     Route: 058
     Dates: start: 20100312
  2. HYDROXYCHLOROQUINE SULFATE [Concomitant]
     Dosage: 200 MG, BID
     Route: 048
     Dates: start: 20090515
  3. ACYCLOVIR [Concomitant]
     Dosage: 400 MG, BID
     Route: 048
  4. KETOROLAC TROMETHAMINE [Concomitant]
     Dosage: 10 MG, TID
     Route: 048
     Dates: start: 20100118
  5. CALCIUM FOLINATE [Concomitant]
     Dosage: 5 MG, BID
     Route: 048
     Dates: start: 20091210
  6. UNSPECIFIED MEDICATION [Concomitant]
     Dosage: UNK UNK, BID
     Dates: start: 20091119
  7. METHOTREXATE [Concomitant]
     Dosage: 2.5 MG, UNK
     Route: 048
     Dates: start: 20100225
  8. MULTI-VITAMINS [Concomitant]
     Dosage: UNK UNK, QD
     Dates: start: 20090409
  9. MOMETASONE FUROATE MONOHYDRATE [Concomitant]
     Dosage: 50 A?G, BID
     Dates: start: 20090730
  10. OMEPRAZOLE [Concomitant]
     Dosage: 20 MG, QD
     Route: 048
     Dates: start: 20091121
  11. ETHINYL ESTRADIOL/NORGESTIMATE [Concomitant]
     Dosage: UNK UNK, QD
     Dates: start: 20100406
  12. OXYCODONE HCL AND ACETAMINOPHEN [Concomitant]
     Dosage: UNK UNK, Q6H
     Route: 048
     Dates: start: 20090818
  13. PREDNISONE [Concomitant]
     Dosage: 5 MG, QD
     Route: 048
     Dates: start: 20091210
  14. LEVOCETIRIZINE DIHYDROCHLORIDE [Concomitant]
     Dosage: 5 MG, QD
     Route: 048
     Dates: start: 20090723

REACTIONS (7)
  - CONTUSION [None]
  - INJECTION SITE ERYTHEMA [None]
  - INJECTION SITE PAIN [None]
  - INJECTION SITE PRURITUS [None]
  - INJECTION SITE RASH [None]
  - INJECTION SITE REACTION [None]
  - INJECTION SITE URTICARIA [None]
